FAERS Safety Report 11583933 (Version 1)
Quarter: 2015Q4

REPORT INFORMATION
  Report Type: Spontaneous
  Country: US (occurrence: US)
  Receive Date: 20151001
  Receipt Date: 20151001
  Transmission Date: 20160304
  Serious: No
  Sender: FDA-Public Use
  Company Number: US-ROCHE-658427

PATIENT
  Age: 54 Year
  Sex: Female

DRUGS (4)
  1. PEGASYS [Suspect]
     Active Substance: PEGINTERFERON ALFA-2A
     Dosage: FORM: PRE-FILLED SYRINGE
     Route: 065
     Dates: start: 20090922, end: 20091028
  2. RIBASPHERE RIBAPAK [Suspect]
     Active Substance: RIBAVIRIN
     Indication: HEPATITIS C
     Dosage: DIVIDED DOSES
     Route: 065
     Dates: start: 20090922, end: 20091028
  3. PEGASYS [Suspect]
     Active Substance: PEGINTERFERON ALFA-2A
     Indication: HEPATITIS C
     Dosage: INTERRUPTED, FORM: PRE-FILLED SYRINGE
     Route: 065
  4. COPEGUS [Suspect]
     Active Substance: RIBAVIRIN
     Indication: HEPATITIS C
     Route: 065

REACTIONS (7)
  - Blood disorder [Unknown]
  - Pain [Unknown]
  - Pyrexia [Unknown]
  - Urticaria [Not Recovered/Not Resolved]
  - Swelling face [Not Recovered/Not Resolved]
  - Alpha 1 foetoprotein increased [Unknown]
  - Sinus congestion [Unknown]

NARRATIVE: CASE EVENT DATE: 20091031
